FAERS Safety Report 20969388 (Version 1)
Quarter: 2022Q2

REPORT INFORMATION
  Report Type: Spontaneous
  Country: US (occurrence: US)
  Receive Date: 20220616
  Receipt Date: 20220616
  Transmission Date: 20220721
  Serious: No
  Sender: FDA-Public Use
  Company Number: US-BRISTOL-MYERS SQUIBB COMPANY-2022-053241

PATIENT
  Age: 70 Year
  Sex: Female
  Weight: 101.1 kg

DRUGS (1)
  1. REVLIMID [Suspect]
     Active Substance: LENALIDOMIDE
     Indication: Breast cancer
     Route: 048

REACTIONS (4)
  - Peripheral swelling [Unknown]
  - Diarrhoea [Unknown]
  - Constipation [Unknown]
  - Intentional product use issue [Unknown]
